FAERS Safety Report 9127141 (Version 2)
Quarter: 2013Q1

REPORT INFORMATION
  Report Type: Report from Study
  Country: DE (occurrence: DE)
  Receive Date: 20130122
  Receipt Date: 20130325
  Transmission Date: 20140127
  Serious: No
  Sender: FDA-Public Use
  Company Number: PHHO2013DE001041

PATIENT
  Age: 37 Year
  Sex: Male

DRUGS (1)
  1. FTY [Suspect]
     Indication: RELAPSING-REMITTING MULTIPLE SCLEROSIS
     Route: 048

REACTIONS (1)
  - Angina pectoris [Unknown]
